FAERS Safety Report 17694567 (Version 2)
Quarter: 2020Q2

REPORT INFORMATION
  Report Type: Spontaneous
  Country: US (occurrence: US)
  Receive Date: 20200422
  Receipt Date: 20200616
  Transmission Date: 20200714
  Serious: Yes (Other)
  Sender: FDA-Public Use
  Company Number: US-PURDUE-USA-2020-0151839

PATIENT
  Sex: Male

DRUGS (9)
  1. OXYCODONE HYDROCHLORIDE (SIMILAR TO NDA 22-272) [Suspect]
     Active Substance: OXYCODONE HYDROCHLORIDE
     Dosage: 120 MG, DAILY
     Route: 048
     Dates: start: 2013
  2. HYDROCODONE [Suspect]
     Active Substance: HYDROCODONE
     Indication: ARTHROPATHY
     Dosage: 500 MG, 5/DAY
     Route: 048
  3. OXYCODONE HYDROCHLORIDE (SIMILAR TO NDA 22-272) [Suspect]
     Active Substance: OXYCODONE HYDROCHLORIDE
     Dosage: 40 MG, UNK
     Route: 048
     Dates: start: 2013, end: 201809
  4. HYDROCODONE BITARTRATE AND ACETAMINOPHEN [Suspect]
     Active Substance: ACETAMINOPHEN\HYDROCODONE BITARTRATE
     Dosage: 7.5/750 MG, UNK
     Route: 048
  5. OXYCODONE HYDROCHLORIDE (SIMILAR TO NDA 22-272) [Suspect]
     Active Substance: OXYCODONE HYDROCHLORIDE
     Indication: BREAKTHROUGH PAIN
     Dosage: 5 MG, 12 TIMES DAILY
     Route: 048
     Dates: start: 2013
  6. HYDROCODONE BITARTRATE AND ACETAMINOPHEN [Suspect]
     Active Substance: ACETAMINOPHEN\HYDROCODONE BITARTRATE
     Indication: ARTHROPATHY
     Dosage: 7.5/325 MG, UNK
     Route: 048
  7. HYDROCODONE [Suspect]
     Active Substance: HYDROCODONE
     Dosage: UNK
     Route: 048
  8. VOLTAREN [Concomitant]
     Active Substance: DICLOFENAC SODIUM
     Indication: PRODUCT USED FOR UNKNOWN INDICATION
     Dosage: 25 MG, UNK
     Route: 065
  9. OXYCONTIN [Suspect]
     Active Substance: OXYCODONE HYDROCHLORIDE
     Indication: PAIN
     Dosage: 20 MG, BID
     Route: 048
     Dates: start: 2013, end: 201809

REACTIONS (10)
  - Drug abuse [Not Recovered/Not Resolved]
  - Medical device implantation [Not Recovered/Not Resolved]
  - Joint injury [Unknown]
  - Depression [Unknown]
  - Drug dependence [Not Recovered/Not Resolved]
  - Neck injury [Not Recovered/Not Resolved]
  - Road traffic accident [Unknown]
  - Crying [Unknown]
  - Off label use [Unknown]
  - Unevaluable event [Unknown]
